FAERS Safety Report 21915390 (Version 1)
Quarter: 2023Q1

REPORT INFORMATION
  Report Type: Spontaneous
  Country: US (occurrence: None)
  Receive Date: 20230125
  Receipt Date: 20230125
  Transmission Date: 20230418
  Serious: Yes (Hospitalization)
  Sender: FDA-Public Use
  Company Number: None

PATIENT
  Sex: Female
  Weight: 132.45 kg

DRUGS (17)
  1. MEKINIST [Suspect]
     Active Substance: TRAMETINIB DIMETHYL SULFOXIDE
     Indication: Malignant melanoma
     Dosage: FREQUENCY : DAILY;?
     Route: 048
  2. TAFINLAR [Suspect]
     Active Substance: DABRAFENIB MESYLATE
     Indication: Malignant melanoma
     Dosage: FREQUENCY : TWICE A DAY;?
     Route: 048
  3. ALEVE [Concomitant]
  4. ASPIRIN [Concomitant]
  5. BUMETANIDE [Concomitant]
  6. CARVEDILOL [Concomitant]
     Active Substance: CARVEDILOL
  7. HYDRALAZINE [Concomitant]
  8. HYDROCORTISONE [Concomitant]
  9. MECLIZINE [Concomitant]
  10. METFORMIN [Concomitant]
  11. NITROGLYCERIN [Concomitant]
  12. NYSTATIN [Concomitant]
  13. OMEPRAZOLE [Concomitant]
  14. ONDANSETRON [Concomitant]
  15. POTASSIUM CHLORIDE [Concomitant]
  16. PROMETHAZINE [Concomitant]
  17. VITAMIN D3 [Concomitant]

REACTIONS (1)
  - Pulmonary embolism [None]
